FAERS Safety Report 11621143 (Version 6)
Quarter: 2016Q1

REPORT INFORMATION
  Report Type: Spontaneous
  Country: US (occurrence: US)
  Receive Date: 20151012
  Receipt Date: 20160209
  Transmission Date: 20160525
  Serious: No
  Sender: FDA-Public Use
  Company Number: ALCN2015US006386

PATIENT
  Age: 74 Year
  Sex: Female

DRUGS (1)
  1. PATANOL [Suspect]
     Active Substance: OLOPATADINE HYDROCHLORIDE
     Indication: EYE ALLERGY
     Dosage: 1 GTT, ONCE/SINGLE
     Route: 047
     Dates: start: 20150930, end: 20150930

REACTIONS (5)
  - Chills [Recovered/Resolved]
  - Nasal congestion [Recovered/Resolved]
  - Throat irritation [Recovered/Resolved]
  - Secretion discharge [Recovered/Resolved]
  - Conjunctivitis [Recovering/Resolving]

NARRATIVE: CASE EVENT DATE: 20150930
